FAERS Safety Report 4494517-1 (Version None)
Quarter: 2004Q4

REPORT INFORMATION
  Report Type: 
  Country: None (occurrence: None)
  Receive Date: 20041103
  Receipt Date: 20041021
  Transmission Date: 20050328
  Serious: Yes (Hospitalization)
  Sender: FDA-Public Use
  Company Number: 2004085087

PATIENT

DRUGS (1)
  1. SILDENAFIL (SILDENAFIL) [Suspect]
     Indication: PULMONARY HYPERTENSION

REACTIONS (3)
  - ARRHYTHMIA [None]
  - DISEASE RECURRENCE [None]
  - PALPITATIONS [None]
